FAERS Safety Report 13166942 (Version 2)
Quarter: 2017Q1

REPORT INFORMATION
  Report Type: Spontaneous
  Country: US (occurrence: US)
  Receive Date: 20170131
  Receipt Date: 20170322
  Transmission Date: 20170428
  Serious: Yes (Other)
  Sender: FDA-Public Use
  Company Number: US-009507513-1701USA011751

PATIENT
  Age: 56 Year
  Sex: Male

DRUGS (2)
  1. NOXAFIL [Suspect]
     Active Substance: POSACONAZOLE
     Indication: SYSTEMIC MYCOSIS
     Route: 048
  2. AMPHOTERICIN B. [Concomitant]
     Active Substance: AMPHOTERICIN B
     Indication: SYSTEMIC MYCOSIS

REACTIONS (3)
  - Aspergillus infection [Unknown]
  - Encephalitis [Unknown]
  - Drug ineffective [Unknown]
